FAERS Safety Report 21008472 (Version 1)
Quarter: 2022Q2

REPORT INFORMATION
  Report Type: Spontaneous
  Country: CN (occurrence: CN)
  Receive Date: 20220627
  Receipt Date: 20220627
  Transmission Date: 20220721
  Serious: Yes (Hospitalization)
  Sender: FDA-Public Use
  Company Number: None

PATIENT
  Age: 2 Year
  Sex: Male
  Weight: 11.2 kg

DRUGS (12)
  1. THYMOGLOBULIN [Suspect]
     Active Substance: LAPINE T-LYMPHOCYTE IMMUNE GLOBULIN
     Indication: Thalassaemia
     Dosage: 25 MG, QD
     Route: 041
     Dates: start: 20220607, end: 20220609
  2. BUSULFAN [Suspect]
     Active Substance: BUSULFAN
     Indication: Thalassaemia
     Dosage: 8 MG, QID
     Route: 041
     Dates: start: 20220602, end: 20220602
  3. BUSULFAN [Suspect]
     Active Substance: BUSULFAN
     Dosage: 14 MG, QID
     Route: 041
     Dates: start: 20220603, end: 20220604
  4. BUSULFAN [Suspect]
     Active Substance: BUSULFAN
     Dosage: 14 MG, QID
     Route: 041
     Dates: start: 20220605, end: 20220605
  5. FLUDARA [Suspect]
     Active Substance: FLUDARABINE PHOSPHATE
     Dosage: 25 MG, QD
     Route: 041
     Dates: start: 20220604, end: 20220606
  6. CYCLOPHOSPHAMIDE [Suspect]
     Active Substance: CYCLOPHOSPHAMIDE
     Indication: Thalassaemia
     Dosage: 0.45 G, QD
     Route: 041
     Dates: start: 20220606, end: 20220609
  7. SODIUM CHLORIDE [Concomitant]
     Active Substance: SODIUM CHLORIDE
     Indication: Thalassaemia
     Dosage: 50 ML, QID
     Route: 041
     Dates: start: 20220602, end: 20220602
  8. SODIUM CHLORIDE [Concomitant]
     Active Substance: SODIUM CHLORIDE
     Dosage: 50 ML, QID
     Route: 041
     Dates: start: 20220603, end: 20220604
  9. SODIUM CHLORIDE [Concomitant]
     Active Substance: SODIUM CHLORIDE
     Dosage: 50 ML, QID
     Route: 041
     Dates: start: 20220605, end: 20220605
  10. SODIUM CHLORIDE [Concomitant]
     Active Substance: SODIUM CHLORIDE
     Dosage: 100 ML, QD
     Route: 041
     Dates: start: 20220604, end: 20220606
  11. DEXTROSE [Concomitant]
     Active Substance: DEXTROSE
     Indication: Thalassaemia
     Dosage: 100 ML, QD
     Route: 041
     Dates: start: 20220606, end: 20220609
  12. DEXTROSE [Concomitant]
     Active Substance: DEXTROSE
     Dosage: 500 ML, QD
     Route: 041
     Dates: start: 20220607, end: 20220609

REACTIONS (4)
  - Hepatic function abnormal [Recovering/Resolving]
  - White blood cell count decreased [Recovering/Resolving]
  - Neutropenia [Recovering/Resolving]
  - Thrombocytopenia [Recovering/Resolving]

NARRATIVE: CASE EVENT DATE: 20220615
